FAERS Safety Report 23889314 (Version 1)
Quarter: 2024Q2

REPORT INFORMATION
  Report Type: Spontaneous
  Country: US (occurrence: US)
  Receive Date: 20240523
  Receipt Date: 20240523
  Transmission Date: 20240716
  Serious: No
  Sender: FDA-Public Use
  Company Number: US-PFIZER INC-PV202400056496

PATIENT
  Age: 91 Year
  Sex: Male
  Weight: 78 kg

DRUGS (5)
  1. VYNDAMAX [Suspect]
     Active Substance: TAFAMIDIS
     Indication: Coronary artery disease
     Dosage: 61 MG, DAILY
     Route: 048
     Dates: start: 20240412
  2. VYNDAMAX [Suspect]
     Active Substance: TAFAMIDIS
     Indication: Cardiac amyloidosis
  3. GLUCOTROL [Concomitant]
     Active Substance: GLIPIZIDE
     Dosage: TAKE 1 TABLET BY MOUTH DAILY IN THE MORNING WITH BREAKFAST
     Route: 048
     Dates: start: 20231226
  4. LIPITOR [Concomitant]
     Active Substance: ATORVASTATIN CALCIUM
     Indication: Hyperlipidaemia
     Dosage: 10 MG, 1X/DAY(TAKE 1 TABLET (10 MG TOTAL) BY MOUTH DAILY)
     Route: 048
     Dates: start: 20240405
  5. ELIQUIS [Concomitant]
     Active Substance: APIXABAN
     Indication: Atrial fibrillation
     Dosage: 5 MG, 2X/DAY(TAKE 1 TABLET BY MOUTH TWICE DAILY)
     Route: 048
     Dates: start: 20231214

REACTIONS (2)
  - Therapeutic response unexpected [Unknown]
  - Pre-existing condition improved [Unknown]
